FAERS Safety Report 11236176 (Version 1)
Quarter: 2015Q3

REPORT INFORMATION
  Report Type: Spontaneous
  Country: US (occurrence: US)
  Receive Date: 20150702
  Receipt Date: 20150702
  Transmission Date: 20151125
  Serious: Yes (Hospitalization, Other)
  Sender: FDA-Public Use
  Company Number: US-PFIZER INC-2015217959

PATIENT
  Age: 75 Year
  Sex: Female
  Weight: 53 kg

DRUGS (3)
  1. TOPROL XL [Concomitant]
     Active Substance: METOPROLOL SUCCINATE
     Indication: BLOOD PRESSURE ABNORMAL
     Dosage: 40 MG, 1X/DAY
     Route: 048
     Dates: start: 2001
  2. PLAVIX [Concomitant]
     Active Substance: CLOPIDOGREL BISULFATE
     Indication: BLOOD DISORDER
     Dosage: 40 MG, 1X/DAY
     Route: 048
     Dates: start: 2001
  3. CHANTIX [Suspect]
     Active Substance: VARENICLINE TARTRATE
     Indication: SMOKING CESSATION THERAPY
     Dosage: 1 DF, 2X/DAY (ONE IN THE MORNING AND ONE IN THE EVENING)

REACTIONS (6)
  - Cardiac disorder [Not Recovered/Not Resolved]
  - Cardiac failure [Not Recovered/Not Resolved]
  - Stent malfunction [Unknown]
  - Condition aggravated [Not Recovered/Not Resolved]
  - Chest pain [Unknown]
  - Myocardial infarction [Unknown]

NARRATIVE: CASE EVENT DATE: 201506
